FAERS Safety Report 9288513 (Version 1)
Quarter: 2013Q2

REPORT INFORMATION
  Report Type: Other
  Country: DK (occurrence: DK)
  Receive Date: 20130514
  Receipt Date: 20130514
  Transmission Date: 20140414
  Serious: Yes (Other)
  Sender: FDA-Public Use
  Company Number: DK-WATSON-2011-24363

PATIENT
  Age: 38 Year
  Sex: Male
  Weight: 59 kg

DRUGS (6)
  1. CIPROFLOXACIN HYDROCHLORIDE (UNKNOWN) [Suspect]
     Indication: INFECTION
     Dosage: 500 MG, BID
     Route: 048
     Dates: start: 20110414
  2. PREDNISOLONE (UNKNOWN) [Suspect]
     Indication: LIVER TRANSPLANT REJECTION
     Dosage: 2.5 MG, DAILY
     Route: 048
     Dates: start: 19920707
  3. ADVAGRAF [Suspect]
     Indication: LIVER TRANSPLANT REJECTION
     Dosage: 3 MG, DAILY
     Route: 048
     Dates: start: 19920707
  4. IMUREL /00001501/ [Suspect]
     Indication: LIVER TRANSPLANT REJECTION
     Dosage: 75MG
     Route: 048
     Dates: start: 19920707
  5. LAMICTAL [Suspect]
     Indication: EPILEPSY
     Dosage: 250 MG, BID
     Route: 048
     Dates: start: 1993
  6. FLEMOXIN /00249602/ [Suspect]
     Indication: INFECTION
     Dosage: 750 MG, BID
     Route: 048
     Dates: start: 20110414

REACTIONS (4)
  - Epileptic aura [Recovered/Resolved]
  - Diplopia [Recovered/Resolved]
  - Dizziness [Recovered/Resolved]
  - Drug interaction [Unknown]
